FAERS Safety Report 7152296-3 (Version None)
Quarter: 2010Q4

REPORT INFORMATION
  Report Type: 
  Country: None (occurrence: None)
  Receive Date: 20101123
  Receipt Date: 20101116
  Transmission Date: 20110411
  Serious: Yes (Other)
  Sender: FDA-Public Use
  Company Number: 2010MA004594

PATIENT
  Age: 56 Year
  Sex: Male

DRUGS (4)
  1. TRIAMCINOLONE ACETONIDE [Suspect]
     Dosage: 4 MG; X6; IO
     Route: 031
     Dates: end: 20070501
  2. CORTICOSTEROIDS [Concomitant]
  3. PREDNISOLONE [Concomitant]
  4. CORTICOSTEROIDS [Concomitant]

REACTIONS (4)
  - DRUG EFFECT DECREASED [None]
  - MACULAR OEDEMA [None]
  - RETINAL FUNCTION TEST ABNORMAL [None]
  - VISUAL ACUITY REDUCED [None]
